FAERS Safety Report 11082054 (Version 2)
Quarter: 2015Q2

REPORT INFORMATION
  Report Type: Spontaneous
  Country: GB (occurrence: GB)
  Receive Date: 20150501
  Receipt Date: 20150512
  Transmission Date: 20150821
  Serious: Yes (Other)
  Sender: FDA-Public Use
  Company Number: GB-JNJFOC-20150424025

PATIENT
  Sex: Male

DRUGS (1)
  1. NICORETTE [Suspect]
     Active Substance: NICOTINE
     Indication: PRODUCT USED FOR UNKNOWN INDICATION
     Route: 045

REACTIONS (7)
  - Neoplasm malignant [Unknown]
  - Fall [Unknown]
  - Product packaging quantity issue [Unknown]
  - Agoraphobia [Unknown]
  - Upper limb fracture [Unknown]
  - Head discomfort [Unknown]
  - Dysgraphia [Unknown]

NARRATIVE: CASE EVENT DATE: 2015
